FAERS Safety Report 9278677 (Version 1)
Quarter: 2013Q2

REPORT INFORMATION
  Report Type: Spontaneous
  Country: US (occurrence: US)
  Receive Date: 20130508
  Receipt Date: 20130508
  Transmission Date: 20140414
  Serious: No
  Sender: FDA-Public Use
  Company Number: US-PFIZER INC-2013137812

PATIENT
  Age: 81 Year
  Sex: Female
  Weight: 81.63 kg

DRUGS (18)
  1. TOVIAZ [Suspect]
     Indication: URINARY INCONTINENCE
     Dosage: 4 MG, DAILY
     Dates: start: 2012, end: 20130430
  2. GLIPIZIDE [Concomitant]
     Indication: DIABETES MELLITUS
     Dosage: 10 MG, 2X/DAY
  3. DOXAZOSIN [Concomitant]
     Indication: HYPERTENSION
     Dosage: 4 MG, DAILY
  4. CRESTOR [Concomitant]
     Dosage: 40 MG, UNK
  5. LOSARTAN [Concomitant]
     Dosage: 50 MG, DAILY
  6. PANTOPRAZOLE [Concomitant]
     Dosage: 40 MG, UNK
  7. PRADAXA [Concomitant]
     Dosage: 150 MG, 2X/DAY
  8. NIASPAN [Concomitant]
     Dosage: 1000 MG, DAILY
  9. LOVAZA [Concomitant]
     Dosage: 1 G, UNK
  10. BISOPROLOL FUMARATE [Concomitant]
     Dosage: 10 MG, DAILY
  11. FURADANTIN [Concomitant]
     Dosage: UNK
  12. MACROBID [Concomitant]
     Dosage: UNK
  13. FUROSEMIDE [Concomitant]
     Dosage: 40 MG, DAILY
  14. DILTIAZEM HYDROCHLORIDE [Concomitant]
     Dosage: 120 MG, UNK
  15. PROPRANOLOL [Concomitant]
     Dosage: 120 MG, UNK
  16. FOLIC ACID [Concomitant]
     Dosage: UNK
  17. POTASSIUM GLUCONATE [Concomitant]
     Dosage: UNK
  18. VITAMIN B6 [Concomitant]
     Dosage: UNK

REACTIONS (2)
  - Dry mouth [Unknown]
  - Drug ineffective [Unknown]
